FAERS Safety Report 4272567-8 (Version None)
Quarter: 2004Q1

REPORT INFORMATION
  Report Type: 
  Country: None (occurrence: None)
  Receive Date: 20040114
  Receipt Date: 20040114
  Transmission Date: 20041129
  Serious: Yes (Other)
  Sender: FDA-Public Use
  Company Number: None

PATIENT
  Sex: Male
  Weight: 64.7 kg

DRUGS (2)
  1. ZOSYN [Suspect]
     Indication: LUNG INFECTION PSEUDOMONAL
     Dosage: 4.5 GM IV Q 8 HR
     Route: 042
     Dates: start: 20031210, end: 20040108
  2. PRIMAXIN [Suspect]
     Indication: LUNG INFECTION PSEUDOMONAL
     Dosage: 500 MG IV Q 8 HR
     Route: 042
     Dates: start: 20031210, end: 20040108

REACTIONS (1)
  - RASH [None]
